FAERS Safety Report 4806466-7 (Version None)
Quarter: 2005Q4

REPORT INFORMATION
  Report Type: 
  Country: None (occurrence: None)
  Receive Date: 20051019
  Receipt Date: 20051006
  Transmission Date: 20060501
  Serious: Yes (Other)
  Sender: FDA-Public Use
  Company Number: 2005130279

PATIENT
  Sex: Male

DRUGS (6)
  1. VIAGRA [Suspect]
     Indication: ERECTILE DYSFUNCTION
  2. ISOSORBIDE DINITRATE [Suspect]
     Indication: CARDIAC FAILURE
     Dosage: 3 IN 1 D, ORAL
     Route: 048
     Dates: start: 20050901
  3. COREG [Concomitant]
  4. ALTACE [Concomitant]
  5. ALDACTONE [Concomitant]
  6. LASIX [Concomitant]

REACTIONS (2)
  - CARDIAC FAILURE [None]
  - LOSS OF CONSCIOUSNESS [None]
